FAERS Safety Report 21246493 (Version 1)
Quarter: 2022Q3

REPORT INFORMATION
  Report Type: Report from Study
  Country: GB (occurrence: None)
  Receive Date: 20220824
  Receipt Date: 20220824
  Transmission Date: 20221026
  Serious: Yes (Life-Threatening, Hospitalization)
  Sender: FDA-Public Use
  Company Number: GB-ROCHE-3166007

PATIENT
  Age: 75 Year
  Sex: Female
  Weight: 96.4 kg

DRUGS (4)
  1. ATEZOLIZUMAB [Suspect]
     Active Substance: ATEZOLIZUMAB
     Indication: Pleural mesothelioma malignant
     Dosage: DATE OF LAST ADMIN. BEFORE SAE: 17/AUG/2022
     Route: 042
     Dates: start: 20211006
  2. HYDROCORTISONE [Concomitant]
     Active Substance: HYDROCORTISONE
  3. POLYETHYLENE GLYCOLS [Concomitant]
     Active Substance: POLYETHYLENE GLYCOLS
  4. TINZAPARIN [Concomitant]
     Active Substance: TINZAPARIN

REACTIONS (1)
  - Abdominal pain [Recovered/Resolved]

NARRATIVE: CASE EVENT DATE: 20220819
